FAERS Safety Report 8115309-8 (Version None)
Quarter: 2012Q1

REPORT INFORMATION
  Report Type: 
  Country: None (occurrence: None)
  Receive Date: 20120201
  Receipt Date: 20120118
  Transmission Date: 20120608
  Serious: Yes (Hospitalization, Other)
  Sender: FDA-Public Use
  Company Number: CIP11002917

PATIENT
  Age: 75 Year
  Sex: Female

DRUGS (27)
  1. CRESTOR [Concomitant]
  2. AVELOX [Concomitant]
  3. SULFAMETHOXAZOLE AND TRIMETHOPRIM [Concomitant]
  4. ACTONEL [Suspect]
     Dosage: 150 MG ONCE MONTHLY, ORAL
     Route: 048
     Dates: start: 20081201
  5. ACTONEL [Suspect]
     Dosage: 35 MG ONCE WEEKLY, ORAL ; 35 MG ONCE WEEKLY, ORAL
     Route: 048
     Dates: start: 20100401
  6. ACTONEL [Suspect]
     Dosage: 35 MG ONCE WEEKLY, ORAL ; 35 MG ONCE WEEKLY, ORAL
     Route: 048
     Dates: start: 20030101
  7. NIASPAN [Concomitant]
  8. ECONAZOLE (ECONAZOLE) [Concomitant]
  9. PROMETHAZINE W/CODEINE /01129901/ (CODEINE PHOSPHATE, PROMETHAZINE HYD [Concomitant]
  10. PREDNISONE TAB [Concomitant]
  11. CEPHALEXIN /00145501/ (CEFALEXIN) [Concomitant]
  12. OMACOR /06852001/ (DOCOSAHEXAENOIC ACID, EICOSAPENTAENOIC ACID) [Concomitant]
  13. SYNTHROID [Concomitant]
  14. HYDROCHLOROTHIAZIDE [Concomitant]
  15. COENZYME Q10 [Concomitant]
  16. ERGOCALCIFEROL [Concomitant]
  17. CALCIUM CARBONATE [Concomitant]
  18. BETAMETHASONE [Concomitant]
  19. AMOXICILLIN [Concomitant]
  20. LOVAZA [Concomitant]
  21. VALTREX [Concomitant]
  22. FOSAMAX [Suspect]
     Indication: OSTEOPOROSIS PROPHYLAXIS
     Dosage: 10 MG DAILY, ORAL ; 70 MG, ORAL
     Route: 048
     Dates: start: 19990901, end: 20010101
  23. FOSAMAX [Suspect]
     Indication: OSTEOPOROSIS
     Dosage: 10 MG DAILY, ORAL ; 70 MG, ORAL
     Route: 048
     Dates: start: 19990901, end: 20010101
  24. FOSAMAX [Suspect]
     Indication: OSTEOPOROSIS PROPHYLAXIS
     Dosage: 10 MG DAILY, ORAL ; 70 MG, ORAL
     Route: 048
     Dates: start: 20010401
  25. FOSAMAX [Suspect]
     Indication: OSTEOPOROSIS
     Dosage: 10 MG DAILY, ORAL ; 70 MG, ORAL
     Route: 048
     Dates: start: 20010401
  26. ZETIA [Concomitant]
  27. DIFLORASONE (DIFLORASONE) [Concomitant]

REACTIONS (12)
  - FRACTURE DISPLACEMENT [None]
  - PAIN IN EXTREMITY [None]
  - ARTHRALGIA [None]
  - BONE MARROW OEDEMA [None]
  - BONE DISORDER [None]
  - LOW TURNOVER OSTEOPATHY [None]
  - STRESS FRACTURE [None]
  - FEMUR FRACTURE [None]
  - FEMORAL NECK FRACTURE [None]
  - OEDEMA PERIPHERAL [None]
  - FALL [None]
  - GAIT DISTURBANCE [None]
